FAERS Safety Report 9929139 (Version 2)
Quarter: 2014Q1

REPORT INFORMATION
  Report Type: Spontaneous
  Country: CN (occurrence: CN)
  Receive Date: 20140227
  Receipt Date: 20140314
  Transmission Date: 20141002
  Serious: Yes (Other)
  Sender: FDA-Public Use
  Company Number: CN-JNJFOC-20140214522

PATIENT
  Age: 32 Year
  Sex: Female
  Weight: 45 kg

DRUGS (4)
  1. REMICADE [Suspect]
     Indication: PSORIATIC ARTHROPATHY
     Dosage: APPROXIMATE NUMBER OF INFUSIONS PATIENT RECEIVED WAS 400 MG
     Route: 042
     Dates: start: 20131118, end: 20140220
  2. REMICADE [Suspect]
     Indication: PSORIATIC ARTHROPATHY
     Dosage: 100MG*1, INJECTION
     Route: 042
     Dates: start: 20140220, end: 20140220
  3. CHLORPHENAMINE [Concomitant]
     Indication: PREMEDICATION
     Route: 030
     Dates: start: 20110220
  4. ETORICOXIB [Concomitant]
     Indication: ARTHRITIS
     Route: 065
     Dates: start: 20140117, end: 20140219

REACTIONS (8)
  - Infusion related reaction [Recovered/Resolved]
  - Depressed level of consciousness [Recovered/Resolved]
  - Hypotension [Recovered/Resolved]
  - Palpitations [Recovered/Resolved]
  - Tachycardia [Recovered/Resolved]
  - Abdominal pain [Recovered/Resolved]
  - Nausea [Recovered/Resolved]
  - Vomiting [Recovered/Resolved]
